FAERS Safety Report 24367186 (Version 1)
Quarter: 2024Q3

REPORT INFORMATION
  Report Type: Spontaneous
  Country: US (occurrence: None)
  Receive Date: 20240926
  Receipt Date: 20240926
  Transmission Date: 20241017
  Serious: No
  Sender: ACS DOBFAR
  Company Number: US-ACS-20240377

PATIENT
  Sex: Female

DRUGS (2)
  1. CEFTAZIDIME [Suspect]
     Active Substance: CEFTAZIDIME
     Indication: Pseudomonas infection
     Dosage: REGIMEN OF 28 DAYS ON (TWICE DAILY) FOLLOWED BY 28 DAYS OFF (USING FOR APPROXIMATELY TWO YEARS)
     Route: 055
  2. UROGESIC-BBLUE [Concomitant]
     Dosage: UROGESIC-BLUE ONCE A DAY (STRENGTH UNKNOWN TO CALLER) ()

REACTIONS (9)
  - Stomatitis [Not Recovered/Not Resolved]
  - Glossitis [Not Recovered/Not Resolved]
  - Headache [Not Recovered/Not Resolved]
  - Eye pain [Not Recovered/Not Resolved]
  - Neck pain [Not Recovered/Not Resolved]
  - Seasonal allergy [Not Recovered/Not Resolved]
  - Incorrect route of product administration [Unknown]
  - Oral candidiasis [Not Recovered/Not Resolved]
  - Vulvovaginal pruritus [Not Recovered/Not Resolved]
